FAERS Safety Report 16071901 (Version 4)
Quarter: 2019Q4

REPORT INFORMATION
  Report Type: Spontaneous
  Country: US (occurrence: US)
  Receive Date: 20190314
  Receipt Date: 20191210
  Transmission Date: 20200122
  Serious: Yes (Other)
  Sender: FDA-Public Use
  Company Number: US-PFIZER INC-2019101408

PATIENT
  Age: 71 Year
  Sex: Female
  Weight: 90.7 kg

DRUGS (7)
  1. SKELAXIN [Suspect]
     Active Substance: METAXALONE
     Indication: BACK INJURY
  2. SKELAXIN [Suspect]
     Active Substance: METAXALONE
     Indication: MULTIPLE INJURIES
     Dosage: 800 MG, AS NEEDED
     Dates: end: 201908
  3. MOBIC [Suspect]
     Active Substance: MELOXICAM
     Dosage: 7.5 MG, ALTERNATE DAY
  4. SKELAXIN [Suspect]
     Active Substance: METAXALONE
     Indication: JOINT INJURY
  5. SKELAXIN [Suspect]
     Active Substance: METAXALONE
     Indication: LIMB INJURY
  6. MOBIC [Suspect]
     Active Substance: MELOXICAM
     Indication: LIMB INJURY
     Dosage: 15 MG, DAILY
  7. MOBIC [Suspect]
     Active Substance: MELOXICAM
     Dosage: 7.5 MG, EVERY COUPLE OF DAYS
     Dates: end: 201908

REACTIONS (5)
  - Laryngitis [Unknown]
  - Pain [Not Recovered/Not Resolved]
  - Nephritis [Unknown]
  - Smoke sensitivity [Unknown]
  - Renal failure [Unknown]

NARRATIVE: CASE EVENT DATE: 201908
